FAERS Safety Report 11230812 (Version 1)
Quarter: 2015Q3

REPORT INFORMATION
  Report Type: Report from Study
  Country: BR (occurrence: BR)
  Receive Date: 20150701
  Receipt Date: 20150701
  Transmission Date: 20151125
  Serious: Yes (Other)
  Sender: FDA-Public Use
  Company Number: PHHY2015BR074658

PATIENT
  Sex: Female
  Weight: 64 kg

DRUGS (2)
  1. ACLASTA [Suspect]
     Active Substance: ZOLEDRONIC ACID
     Indication: OSTEITIS DEFORMANS
     Dosage: 5 MG (1 APPLICATION), EACH 6 MONTHS
     Route: 065
  2. DEPURA [Suspect]
     Active Substance: CHOLECALCIFEROL
     Indication: PRODUCT USED FOR UNKNOWN INDICATION
     Route: 065

REACTIONS (4)
  - Fracture [Recovering/Resolving]
  - Pain [Recovering/Resolving]
  - Inappropriate schedule of drug administration [Unknown]
  - Hip fracture [Recovering/Resolving]
